FAERS Safety Report 19824551 (Version 1)
Quarter: 2021Q3

REPORT INFORMATION
  Report Type: Spontaneous
  Country: US (occurrence: US)
  Receive Date: 20210913
  Receipt Date: 20210913
  Transmission Date: 20211014
  Serious: Yes (Death)
  Sender: FDA-Public Use
  Company Number: None

PATIENT
  Age: 80 Year
  Sex: Female

DRUGS (11)
  1. ATENOLOL. [Concomitant]
     Active Substance: ATENOLOL
  2. FISH OIL [Concomitant]
     Active Substance: FISH OIL
  3. GLIPIZIDE. [Concomitant]
     Active Substance: GLIPIZIDE
  4. CALCIUM+D3 [Concomitant]
     Active Substance: CALCIUM\CHOLECALCIFEROL
  5. LIVALO [Concomitant]
     Active Substance: PITAVASTATIN CALCIUM
  6. PEDNISONE [Concomitant]
  7. CENTRUM CHW SILVER [Concomitant]
  8. VENTOLIN HFA [Concomitant]
     Active Substance: ALBUTEROL SULFATE
  9. ESBRIET [Suspect]
     Active Substance: PIRFENIDONE
     Indication: IDIOPATHIC PULMONARY FIBROSIS
     Route: 048
     Dates: start: 20171201, end: 202108
  10. ASPIRIN CHW [Concomitant]
  11. MELOXICAM. [Concomitant]
     Active Substance: MELOXICAM

REACTIONS (1)
  - Death [None]

NARRATIVE: CASE EVENT DATE: 202108
